FAERS Safety Report 10636494 (Version 2)
Quarter: 2015Q1

REPORT INFORMATION
  Report Type: Spontaneous
  Country: DE (occurrence: DE)
  Receive Date: 20141207
  Receipt Date: 20150210
  Transmission Date: 20150720
  Serious: Yes (Hospitalization, Other)
  Sender: FDA-Public Use
  Company Number: DE-AMGEN-DEUSP2014094069

PATIENT
  Age: 59 Year
  Sex: Female
  Weight: 80 kg

DRUGS (7)
  1. 5 FU [Concomitant]
     Active Substance: FLUOROURACIL
     Indication: COLORECTAL CANCER METASTATIC
     Dosage: UNK
  2. OXALIPLATIN. [Concomitant]
     Active Substance: OXALIPLATIN
     Indication: COLORECTAL CANCER METASTATIC
     Dosage: UNK
  3. PANITUMUMAB [Suspect]
     Active Substance: PANITUMUMAB
     Indication: COLORECTAL CANCER METASTATIC
     Dosage: 500 MG, Q2WK
     Route: 042
     Dates: start: 20140908, end: 20141110
  4. MINOCYCLINE [Concomitant]
     Active Substance: MINOCYCLINE\MINOCYCLINE HYDROCHLORIDE
     Indication: RASH
     Dosage: 50 MG, QD
     Route: 048
     Dates: start: 20140901, end: 20141129
  5. ASPIRIN. [Concomitant]
     Active Substance: ASPIRIN
     Indication: COAGULOPATHY
     Dosage: 100 MG, QD
     Route: 048
  6. FOLINIC ACID [Concomitant]
     Active Substance: LEUCOVORIN
     Indication: COLORECTAL CANCER METASTATIC
     Dosage: UNK
  7. THYROJOD [Concomitant]
     Indication: HYPOTHYROIDISM
     Dosage: 100 MCG, QD
     Route: 048

REACTIONS (3)
  - Rash [Recovered/Resolved]
  - Skin toxicity [Unknown]
  - Skin reaction [Recovered/Resolved]

NARRATIVE: CASE EVENT DATE: 20140922
